FAERS Safety Report 7088823-4 (Version None)
Quarter: 2010Q4

REPORT INFORMATION
  Report Type: 
  Country: None (occurrence: None)
  Receive Date: 20101108
  Receipt Date: 20101027
  Transmission Date: 20110411
  Serious: Yes (Hospitalization)
  Sender: FDA-Public Use
  Company Number: PHHY2010BE71946

PATIENT
  Sex: Male

DRUGS (1)
  1. RITALIN [Suspect]
     Indication: ATTENTION DEFICIT/HYPERACTIVITY DISORDER
     Dosage: 15 MG PER DAY (10 MG IN THE MORNING AND 5 MG AT NOON)
     Dates: start: 20070101, end: 20100101

REACTIONS (7)
  - DECREASED APPETITE [None]
  - GROWTH RETARDATION [None]
  - HAEMATURIA [None]
  - HYPOCALCAEMIA [None]
  - INSOMNIA [None]
  - NEPHROLITHIASIS [None]
  - URINE CALCIUM [None]
